FAERS Safety Report 7458214-2 (Version None)
Quarter: 2011Q2

REPORT INFORMATION
  Report Type: 
  Country: None (occurrence: None)
  Receive Date: 20110504
  Receipt Date: 20110427
  Transmission Date: 20111010
  Serious: Yes (Other)
  Sender: FDA-Public Use
  Company Number: PHHY2011FR30072

PATIENT
  Age: 59 Year
  Sex: Female
  Weight: 70 kg

DRUGS (8)
  1. AERIUS [Concomitant]
     Indication: HYPERSENSITIVITY
     Dosage: QD
     Dates: start: 20091211
  2. MIFLONIL [Suspect]
     Indication: BRONCHITIS
     Dosage: UNK
     Dates: start: 20110318, end: 20110403
  3. METHOCARBAMOL [Concomitant]
     Indication: MUSCLE SPASMS
     Dosage: UNK, BID
     Dates: start: 20110318, end: 20110325
  4. FORADIL [Suspect]
     Indication: ASTHMA
  5. BETA-ALANINE [Concomitant]
     Indication: HOT FLUSH
     Dosage: BID
     Dates: start: 20100929
  6. FORADIL [Suspect]
     Indication: BRONCHITIS
     Dosage: UNK
     Dates: start: 20110318, end: 20110403
  7. VASTAREL [Concomitant]
  8. MIFLONIL [Suspect]
     Indication: ASTHMA

REACTIONS (4)
  - ASTHENIA [None]
  - DEPRESSION [None]
  - HYPERSOMNIA [None]
  - FATIGUE [None]
